FAERS Safety Report 8192160-4 (Version None)
Quarter: 2012Q1

REPORT INFORMATION
  Report Type: 
  Country: None (occurrence: None)
  Receive Date: 20120307
  Receipt Date: 20120229
  Transmission Date: 20120608
  Serious: Yes (Hospitalization)
  Sender: FDA-Public Use
  Company Number: FR-PFIZER INC-2012053240

PATIENT
  Age: 53 Year
  Sex: Female

DRUGS (7)
  1. METFORMIN [Concomitant]
  2. MABTHERA [Suspect]
     Indication: LYMPHOMA
     Dosage: 375 MG/M2, EVERY 3 MONTHS
     Route: 042
     Dates: start: 20110315, end: 20111205
  3. ATOVAQUONE [Concomitant]
  4. ACARBOSE [Concomitant]
  5. FENOFIBRATE [Concomitant]
  6. AROMASIN [Suspect]
     Indication: BREAST CANCER
     Dosage: 1 DF, 1X/DAY
     Route: 048
     Dates: start: 20080101
  7. LANTUS [Concomitant]

REACTIONS (1)
  - FEBRILE NEUTROPENIA [None]
